FAERS Safety Report 5765542-5 (Version None)
Quarter: 2008Q2

REPORT INFORMATION
  Report Type: 
  Country: None (occurrence: None)
  Receive Date: 20080611
  Receipt Date: 20080507
  Transmission Date: 20081010
  Serious: Yes (Other)
  Sender: FDA-Public Use
  Company Number: JP-MERCK-0805USA02013

PATIENT
  Age: 70 Year
  Sex: Female

DRUGS (3)
  1. SINGULAIR [Suspect]
     Indication: ASTHMA
     Route: 048
     Dates: start: 20010901, end: 20041001
  2. PREDNISOLONE [Concomitant]
     Indication: ASTHMA
     Route: 048
     Dates: start: 20010101
  3. [THERAPY UNSPECIFIED] [Concomitant]
     Indication: VISION BLURRED
     Route: 047
     Dates: start: 20040201

REACTIONS (1)
  - ALLERGIC GRANULOMATOUS ANGIITIS [None]
